FAERS Safety Report 16625722 (Version 1)
Quarter: 2019Q3

REPORT INFORMATION
  Report Type: Spontaneous
  Country: US (occurrence: US)
  Receive Date: 20190724
  Receipt Date: 20190724
  Transmission Date: 20191004
  Serious: No
  Sender: FDA-Public Use
  Company Number: US-009507513-1907USA012406

PATIENT
  Sex: Male

DRUGS (1)
  1. TEMODAR [Suspect]
     Active Substance: TEMOZOLOMIDE
     Indication: BRAIN NEOPLASM MALIGNANT
     Dosage: 240 MILLIGRAM, DAILY FOR 5 DAYS EVERY 28DAYS
     Route: 048

REACTIONS (3)
  - Pruritus [Unknown]
  - Incorrect dose administered [Unknown]
  - Dysphagia [Unknown]
